FAERS Safety Report 9256583 (Version 1)
Quarter: 2013Q2

REPORT INFORMATION
  Report Type: Spontaneous
  Country: US (occurrence: US)
  Receive Date: 20130426
  Receipt Date: 20130426
  Transmission Date: 20140414
  Serious: No
  Sender: FDA-Public Use
  Company Number: US-BIOGENIDEC-2013BI037363

PATIENT
  Sex: Male

DRUGS (8)
  1. TYSABRI [Suspect]
     Indication: MULTIPLE SCLEROSIS
     Route: 042
     Dates: start: 20080105, end: 20100911
  2. TYSABRI [Suspect]
     Indication: MULTIPLE SCLEROSIS
     Route: 042
     Dates: start: 20110214
  3. PHOSPHORUS [Concomitant]
     Indication: ENERGY INCREASED
  4. SELENIUM [Concomitant]
     Indication: MALABSORPTION
  5. MULTIPLE SUPPLEMENTS (NOS) [Concomitant]
     Indication: PROPHYLAXIS
  6. LORTAB [Concomitant]
     Indication: PAIN
  7. TRAMADOL [Concomitant]
     Indication: PAIN
  8. AMANTADINE [Concomitant]
     Indication: ASTHENIA

REACTIONS (3)
  - Apathy [Recovered/Resolved]
  - Muscle spasticity [Recovered/Resolved]
  - Rash macular [Not Recovered/Not Resolved]
